FAERS Safety Report 16205615 (Version 3)
Quarter: 2019Q2

REPORT INFORMATION
  Report Type: Spontaneous
  Country: US (occurrence: US)
  Receive Date: 20190417
  Receipt Date: 20190425
  Transmission Date: 20190711
  Serious: Yes (Other)
  Sender: FDA-Public Use
  Company Number: US-BIOGEN-2019BI00726022

PATIENT
  Sex: Female

DRUGS (2)
  1. AVONEX [Suspect]
     Active Substance: INTERFERON BETA-1A
     Route: 065
     Dates: end: 20120101
  2. AVONEX [Suspect]
     Active Substance: INTERFERON BETA-1A
     Indication: MULTIPLE SCLEROSIS
     Dosage: - INJECT 30 MCG INTRAMUSCULARLY ONCE WEEKLY
     Route: 030
     Dates: start: 20060908, end: 201101

REACTIONS (4)
  - Musculoskeletal stiffness [Recovered/Resolved with Sequelae]
  - Mobility decreased [Unknown]
  - Cerebrovascular accident [Unknown]
  - Muscle spasms [Recovered/Resolved with Sequelae]
